FAERS Safety Report 9850327 (Version 1)
Quarter: 2014Q1

REPORT INFORMATION
  Report Type: Spontaneous
  Country: TR (occurrence: TR)
  Receive Date: 20140128
  Receipt Date: 20140128
  Transmission Date: 20141002
  Serious: Yes (Death, Other)
  Sender: FDA-Public Use
  Company Number: TR-BAYER-2014-010336

PATIENT
  Sex: Male

DRUGS (2)
  1. CORASPIN [Suspect]
     Indication: CARDIAC VALVE DISEASE
  2. COUMADIN [Interacting]
     Indication: CARDIAC VALVE DISEASE

REACTIONS (4)
  - Death [Fatal]
  - International normalised ratio increased [None]
  - Traumatic intracranial haemorrhage [None]
  - Labelled drug-drug interaction medication error [None]
